FAERS Safety Report 10019007 (Version 3)
Quarter: 2014Q1

REPORT INFORMATION
  Report Type: Report from Study
  Country: US (occurrence: US)
  Receive Date: 20140318
  Receipt Date: 20140326
  Transmission Date: 20141002
  Serious: Yes (Hospitalization, Other)
  Sender: FDA-Public Use
  Company Number: US-JNJFOC-20140306778

PATIENT
  Age: 66 Year
  Sex: Female
  Weight: 79.38 kg

DRUGS (8)
  1. SIMPONI [Suspect]
     Indication: RHEUMATOID ARTHRITIS
     Route: 058
     Dates: start: 201306, end: 201308
  2. MELOXICAM [Suspect]
     Indication: RHEUMATOID ARTHRITIS
     Route: 065
  3. PREDNISONE [Suspect]
     Indication: RHEUMATOID ARTHRITIS
     Route: 065
  4. LEFLUNOMIDE [Suspect]
     Indication: RHEUMATOID ARTHRITIS
     Route: 065
  5. POTASSIUM [Concomitant]
     Indication: BLOOD POTASSIUM DECREASED
     Route: 048
  6. GALENIC ATENOLOL/CHLORTALIDONE [Concomitant]
     Indication: BLOOD PRESSURE
     Dosage: DOSE- 50-25MG
     Route: 048
  7. MONTELUKAST [Concomitant]
     Indication: ASTHMA
     Route: 065
     Dates: start: 2013
  8. LEVOCETIRIZINE [Concomitant]
     Indication: MULTIPLE ALLERGIES
     Route: 048
     Dates: start: 2013

REACTIONS (8)
  - Infection [Recovering/Resolving]
  - Eating disorder [Recovered/Resolved]
  - Arthropathy [Recovered/Resolved]
  - Gastric ulcer perforation [Recovering/Resolving]
  - Gastric ulcer [Recovering/Resolving]
  - Gastrointestinal fistula [Recovering/Resolving]
  - Spinal disorder [Not Recovered/Not Resolved]
  - Pain [Not Recovered/Not Resolved]
